FAERS Safety Report 9235063 (Version 2)
Quarter: 2013Q2

REPORT INFORMATION
  Report Type: Spontaneous
  Country: US (occurrence: US)
  Receive Date: 20130416
  Receipt Date: 20130422
  Transmission Date: 20140414
  Serious: Yes (Hospitalization)
  Sender: FDA-Public Use
  Company Number: US-GILEAD-2013-0073440

PATIENT
  Sex: Female

DRUGS (3)
  1. LETAIRIS [Suspect]
     Indication: PULMONARY HYPERTENSION
     Dosage: 10 MG, UNK
     Route: 048
     Dates: start: 20100909
  2. LETAIRIS [Suspect]
     Indication: CORONARY ARTERY DISEASE
  3. FLOLAN [Concomitant]

REACTIONS (2)
  - Cardiac disorder [Unknown]
  - Condition aggravated [Unknown]
